FAERS Safety Report 5572194-6 (Version None)
Quarter: 2007Q4

REPORT INFORMATION
  Report Type: 
  Country: None (occurrence: None)
  Receive Date: 20071221
  Receipt Date: 20071217
  Transmission Date: 20080405
  Serious: Yes (Disabling)
  Sender: FDA-Public Use
  Company Number: IT-MERCK-0712ITA00004

PATIENT
  Age: 75 Year
  Sex: Male

DRUGS (2)
  1. HYZAAR [Suspect]
     Indication: HYPERTENSION
     Route: 048
     Dates: start: 20010101
  2. [THERAPY UNSPECIFIED] [Concomitant]
     Indication: MYCOSIS FUNGOIDES
     Route: 065

REACTIONS (2)
  - MYCOSIS FUNGOIDES [None]
  - URTICARIA [None]
